FAERS Safety Report 6936717-4 (Version None)
Quarter: 2010Q3

REPORT INFORMATION
  Report Type: 
  Country: None (occurrence: None)
  Receive Date: 20100818
  Receipt Date: 20100804
  Transmission Date: 20110219
  Serious: Yes (Other)
  Sender: FDA-Public Use
  Company Number: 016753

PATIENT
  Sex: Female

DRUGS (6)
  1. KEPPRA [Suspect]
     Indication: EPILEPSY
     Dosage: (1000 MG), (1500 MG)
     Dates: end: 20080212
  2. KEPPRA [Suspect]
     Indication: EPILEPSY
     Dosage: (1000 MG), (1500 MG)
     Dates: start: 20080212
  3. GABAPENTIN [Concomitant]
  4. CYMBALTA [Concomitant]
  5. PRENATAL VITAMINS /01549301/ [Concomitant]
  6. FOLIC ACID [Concomitant]

REACTIONS (3)
  - DRUG EXPOSURE DURING PREGNANCY [None]
  - PREGNANCY [None]
  - PREMATURE LABOUR [None]
